FAERS Safety Report 7136006-1 (Version None)
Quarter: 2010Q4

REPORT INFORMATION
  Report Type: 
  Country: None (occurrence: None)
  Receive Date: 20101204
  Receipt Date: 20100810
  Transmission Date: 20110411
  Serious: Yes (Hospitalization, Other)
  Sender: FDA-Public Use
  Company Number: US-BAYER-200937696NA

PATIENT

DRUGS (4)
  1. YASMIN [Suspect]
     Route: 048
     Dates: start: 20080701, end: 20081001
  2. YAZ [Suspect]
     Dates: start: 20080701, end: 20081001
  3. ALEVE (CAPLET) [Concomitant]
  4. VICODIN [Concomitant]
     Dates: start: 20090701

REACTIONS (9)
  - CHOLECYSTITIS ACUTE [None]
  - CHOLECYSTITIS CHRONIC [None]
  - CHOLELITHIASIS [None]
  - ECONOMIC PROBLEM [None]
  - LIVER DISORDER [None]
  - LOCALISED INTRAABDOMINAL FLUID COLLECTION [None]
  - MULTIPLE INJURIES [None]
  - PAIN [None]
  - PANCREATITIS [None]
